FAERS Safety Report 8218579-0 (Version None)
Quarter: 2012Q1

REPORT INFORMATION
  Report Type: 
  Country: None (occurrence: None)
  Receive Date: 20120319
  Receipt Date: 20120314
  Transmission Date: 20120608
  Serious: Yes (Hospitalization, Other)
  Sender: FDA-Public Use
  Company Number: US-BAYER-2012-026146

PATIENT
  Age: 39 Year
  Sex: Female

DRUGS (5)
  1. ZOLOFT [Concomitant]
     Dosage: 50 MG, UNK
     Route: 048
  2. MULTI-VITAMIN [Concomitant]
  3. YASMIN [Suspect]
  4. YAZ [Suspect]
  5. IBUPROFEN (ADVIL) [Concomitant]

REACTIONS (1)
  - PULMONARY EMBOLISM [None]
